FAERS Safety Report 9918093 (Version 1)
Quarter: 2014Q1

REPORT INFORMATION
  Report Type: Spontaneous
  Country: US (occurrence: US)
  Receive Date: 20140223
  Receipt Date: 20140223
  Transmission Date: 20141002
  Serious: No
  Sender: FDA-Public Use
  Company Number: US-ALLERGAN-1311999US

PATIENT
  Age: 4 Decade
  Sex: Female

DRUGS (5)
  1. TAZORAC GEL 0.1% [Suspect]
     Indication: ACNE CYSTIC
     Dosage: UNK
     Route: 061
  2. TAZORAC GEL 0.1% [Suspect]
     Dosage: UNK UNK, QHS
     Route: 061
  3. TETRACYCLINE [Concomitant]
     Indication: ACNE CYSTIC
  4. DOXYCYCLINE [Concomitant]
     Indication: ACNE CYSTIC
  5. MINOCYCLINE [Concomitant]

REACTIONS (3)
  - Inappropriate schedule of drug administration [Unknown]
  - Drug ineffective [Unknown]
  - Application site dryness [Unknown]
